FAERS Safety Report 4546158-5 (Version None)
Quarter: 2005Q1

REPORT INFORMATION
  Report Type: 
  Country: None (occurrence: None)
  Receive Date: 20050105
  Receipt Date: 20050105
  Transmission Date: 20050727
  Serious: Yes (Hospitalization)
  Sender: FDA-Public Use
  Company Number: None

PATIENT
  Age: 58 Year
  Sex: Male
  Weight: 107.9561 kg

DRUGS (1)
  1. CARBOPLATIN [Suspect]
     Indication: BLADDER CANCER
     Dosage: AUC 5   D1 Q 21 D INTRAVENOUS
     Route: 042
     Dates: start: 20041018, end: 20041201

REACTIONS (1)
  - DEEP VEIN THROMBOSIS [None]
